FAERS Safety Report 4677155-7 (Version None)
Quarter: 2005Q2

REPORT INFORMATION
  Report Type: 
  Country: None (occurrence: None)
  Receive Date: 20050526
  Receipt Date: 20050511
  Transmission Date: 20051028
  Serious: Yes (Death)
  Sender: FDA-Public Use
  Company Number: DSA_26446_2005

PATIENT
  Age: 99 Year
  Sex: Female

DRUGS (3)
  1. CARDIZEM [Suspect]
     Indication: ESSENTIAL HYPERTENSION
     Dosage: DF UNK PO
     Route: 048
     Dates: start: 20041216, end: 20041222
  2. ATENOLOL [Suspect]
     Indication: ESSENTIAL HYPERTENSION
     Dosage: DF UNK UNK
     Dates: start: 20041222, end: 20041222
  3. DOTHIEPIN HYDROCHLORIDE [Concomitant]

REACTIONS (3)
  - ATRIOVENTRICULAR BLOCK COMPLETE [None]
  - CIRCULATORY COLLAPSE [None]
  - DRUG INTERACTION [None]
